FAERS Safety Report 14784450 (Version 1)
Quarter: 2018Q2

REPORT INFORMATION
  Report Type: Report from Study
  Country: IT (occurrence: IT)
  Receive Date: 20180420
  Receipt Date: 20180420
  Transmission Date: 20180711
  Serious: Yes (Hospitalization)
  Sender: FDA-Public Use
  Company Number: IT-ALLERGAN-1821860US

PATIENT
  Age: 40 Year
  Sex: Female

DRUGS (5)
  1. MUTABON [Suspect]
     Active Substance: AMITRIPTYLINE HYDROCHLORIDE\PERPHENAZINE
     Indication: INTENTIONAL SELF-INJURY
     Dosage: FORM STRENGTH: 2 MG + 25 MG; OVERDOSE: 26 DOSAGE FORMS IN TOTAL
     Route: 048
     Dates: start: 20170909, end: 20170909
  2. DELORAZEPAM [Suspect]
     Active Substance: DELORAZEPAM
     Indication: INTENTIONAL SELF-INJURY
     Dosage: OVERDOSE: 6.5 MILLIGRAM IN TOTAL
     Route: 048
     Dates: start: 20170909, end: 20170909
  3. GABAPENTIN. [Concomitant]
     Active Substance: GABAPENTIN
     Indication: PRODUCT USED FOR UNKNOWN INDICATION
     Route: 065
  4. ESCITALOPRAM OXALATE UNK [Suspect]
     Active Substance: ESCITALOPRAM OXALATE
     Indication: INTENTIONAL SELF-INJURY
     Dosage: OVERDOSE: 590 MILLIGRAM IN TOTAL
     Route: 048
  5. DEPAMIDE [Concomitant]
     Active Substance: VALPROMIDE
     Indication: PRODUCT USED FOR UNKNOWN INDICATION
     Route: 065

REACTIONS (7)
  - Alcohol interaction [Recovered/Resolved]
  - Mydriasis [Recovered/Resolved]
  - Acute respiratory failure [Recovered/Resolved]
  - Electrocardiogram QT prolonged [Recovered/Resolved]
  - Drug abuse [Recovered/Resolved]
  - Overdose [Unknown]
  - Coma [Recovered/Resolved]

NARRATIVE: CASE EVENT DATE: 20170909
